FAERS Safety Report 23494913 (Version 1)
Quarter: 2024Q1

REPORT INFORMATION
  Report Type: Spontaneous
  Country: GB (occurrence: GB)
  Receive Date: 20240207
  Receipt Date: 20240207
  Transmission Date: 20240409
  Serious: Yes (Disabling, Other)
  Sender: FDA-Public Use
  Company Number: None

PATIENT
  Age: 91 Year
  Sex: Male
  Weight: 72 kg

DRUGS (22)
  1. CLARITHROMYCIN [Suspect]
     Active Substance: CLARITHROMYCIN
     Indication: Product used for unknown indication
     Dosage: 1 DF, BID (ONE TABLET TWICE A DAY (ANTIBIOTIC) STOP ATORVA)
     Route: 065
     Dates: start: 20240125
  2. ALFACALCIDOL [Concomitant]
     Active Substance: ALFACALCIDOL
     Indication: Product used for unknown indication
     Dosage: 1 DF, QD (ONE CAPSULE DAILY (VITAMIN D))
     Route: 065
     Dates: start: 20221116
  3. ALLOPURINOL [Concomitant]
     Active Substance: ALLOPURINOL
     Indication: Product used for unknown indication
     Dosage: TWO TABLETS DAILY
     Route: 065
     Dates: start: 20230510
  4. ASPIRIN [Concomitant]
     Active Substance: ASPIRIN
     Indication: Product used for unknown indication
     Dosage: 1 DF, QD (ONE TABLET DAILY WITH FOOD (ANTI-CLOTTING ANTI-.)
     Route: 065
     Dates: start: 20230510
  5. ATORVASTATIN [Concomitant]
     Active Substance: ATORVASTATIN
     Indication: Product used for unknown indication
     Dosage: 1 DF, QD (ONE TABLET DAILY AT NIGHT (TO LOWER CHOLESTEROL)
     Route: 065
     Dates: start: 20230515
  6. BISOPROLOL [Concomitant]
     Active Substance: BISOPROLOL\BISOPROLOL FUMARATE
     Indication: Product used for unknown indication
     Dosage: 1 DF, QD (ONE TABLET DAILY (BETA-BLOCKER FOR HEART)
     Route: 065
     Dates: start: 20230515
  7. BUDESONIDE [Concomitant]
     Active Substance: BUDESONIDE
     Indication: Product used for unknown indication
     Dosage: 2 DF, BID (ONE SPRAY SNIFFED IN EACH NOSTRIL TWICE A DAY )
     Route: 065
     Dates: start: 20231121, end: 20231221
  8. CETIRIZINE [Concomitant]
     Active Substance: CETIRIZINE HYDROCHLORIDE
     Indication: Product used for unknown indication
     Dosage: 1 DF, PRN (ONE TABLET DAILY AS NEEDED (ANTIHISTAMINE ANTI-.)
     Route: 065
     Dates: start: 20221116, end: 20240118
  9. EMLA [Concomitant]
     Active Substance: LIDOCAINE\PRILOCAINE
     Indication: Product used for unknown indication
     Dosage: APPLY IF NEEDED (LIDOCAINE/ PRILOCAINE TO NUMB ...
     Route: 065
     Dates: start: 20230922
  10. FENTANYL [Concomitant]
     Active Substance: FENTANYL\FENTANYL CITRATE
     Indication: Product used for unknown indication
     Dosage: APPLY ONE PATCH, CHANGE EVERY THREE DAYS (STRONG PAINKILLER)
     Route: 065
     Dates: start: 20240109, end: 20240123
  11. FUROSEMIDE [Concomitant]
     Active Substance: FUROSEMIDE
     Indication: Product used for unknown indication
     Dosage: 1 DF, QD (ONE TABLET DAILY (TO REMOVE FLUID EXCESS))
     Route: 065
     Dates: start: 20221116
  12. FYBOGEL [Concomitant]
     Active Substance: HERBALS\PLANTAGO OVATA SEED
     Indication: Product used for unknown indication
     Dosage: 1 DF, QD (ONE  SACHET DAILY (TO ADD SOFT BULK TO STOOLS))
     Route: 065
     Dates: start: 20221116
  13. NITROGLYCERIN [Concomitant]
     Active Substance: NITROGLYCERIN
     Indication: Product used for unknown indication
     Dosage: ONE OR TWO SPRAYS UNDER THE TONGUE IF NEEDED : ...
     Route: 065
     Dates: start: 20230515
  14. HYDROCORTISONE [Concomitant]
     Active Substance: HYDROCORTISONE
     Indication: Product used for unknown indication
     Dosage: 1 DF, BID (APPLY THINLY TWICE A DAY (MILD STEROID ANTI-INF)
     Route: 065
     Dates: start: 20230904
  15. POLYETHYLENE GLYCOLS [Concomitant]
     Active Substance: POLYETHYLENE GLYCOLS
     Indication: Product used for unknown indication
     Dosage: 1 DF, QD (ONE SACHETS DAILY : MIXED WITH WATER / JUICE )
     Route: 065
     Dates: start: 20231207, end: 20240106
  16. MAGNESIUM ASPARTATE [Concomitant]
     Active Substance: MAGNESIUM ASPARTATE
     Indication: Product used for unknown indication
     Dosage: 2 DF, QD (USE TWO SACHETS DAILY)
     Route: 065
     Dates: start: 20221116, end: 20240118
  17. ISOSORBIDE MONONITRATE [Concomitant]
     Active Substance: ISOSORBIDE MONONITRATE
     Indication: Product used for unknown indication
     Dosage: 0.5 DF, QD (HALF TABLET IN THE MORNING (ISM-NITRATE ANTI-AN)
     Route: 065
     Dates: start: 20230523, end: 20240118
  18. MORPHINE SULFATE [Concomitant]
     Active Substance: MORPHINE SULFATE
     Indication: Product used for unknown indication
     Dosage: 2.5-5ML DOSE 2-4 HOURLY AS NEEDED (PAINKILLER)
     Route: 065
     Dates: start: 20240125, end: 20240201
  19. OMEPRAZOLE [Concomitant]
     Active Substance: OMEPRAZOLE
     Indication: Product used for unknown indication
     Dosage: 1 DF, BID (ONE CAPSULE TWICE /DAY TO REDUCE ACID IN STOMACH))
     Route: 065
     Dates: start: 20221116
  20. ACETAMINOPHEN [Concomitant]
     Active Substance: ACETAMINOPHEN
     Indication: Product used for unknown indication
     Dosage: 2 DF (TWO TABLETS UP TO FOUR TIMES A DAY AS NEEDED (P.)
     Route: 065
     Dates: start: 20240125
  21. PHOSEX [Concomitant]
     Indication: Product used for unknown indication
     Dosage: 1 DF, BID (ONE TWICE DAILY)
     Route: 065
     Dates: start: 20240125
  22. TAMSULOSIN HYDROCHLORIDE [Concomitant]
     Active Substance: TAMSULOSIN HYDROCHLORIDE
     Indication: Product used for unknown indication
     Dosage: 1 DF, QD (ONE CAPSULE DAILY (TO IMPROVE URINE FLOW))
     Route: 065
     Dates: start: 20240125

REACTIONS (3)
  - Mania [Recovered/Resolved]
  - Nightmare [Recovered/Resolved]
  - Confusional state [Recovered/Resolved]

NARRATIVE: CASE EVENT DATE: 20240126
